FAERS Safety Report 7909765-5 (Version None)
Quarter: 2011Q4

REPORT INFORMATION
  Report Type: 
  Country: None (occurrence: None)
  Receive Date: 20111111
  Receipt Date: 20111103
  Transmission Date: 20120403
  Serious: Yes (Hospitalization)
  Sender: FDA-Public Use
  Company Number: GB-BAYER-2011-108722

PATIENT
  Age: 65 Year
  Sex: Female

DRUGS (5)
  1. IBUPROFEN [Suspect]
     Indication: SCIATICA
     Dosage: 400 MG, TID
     Route: 048
     Dates: start: 20110226, end: 20110228
  2. BENDROFLUMETHIAZIDE [Concomitant]
     Indication: HYPERTENSION
  3. NAPROXEN SODIUM [Suspect]
     Indication: SCIATICA
     Dosage: 250 MG, TID
     Dates: start: 20110225, end: 20110228
  4. AMLODIPINE [Concomitant]
     Indication: HYPERTENSION
  5. ACETAMINOPHEN AND CODEINE PHOSPHATE [Concomitant]
     Indication: SCIATICA
     Dosage: 4 DF, QD

REACTIONS (2)
  - HAEMATEMESIS [None]
  - GASTROINTESTINAL HAEMORRHAGE [None]
